FAERS Safety Report 26009778 (Version 1)
Quarter: 2025Q4

REPORT INFORMATION
  Report Type: Spontaneous
  Country: EU (occurrence: EU)
  Receive Date: 20251107
  Receipt Date: 20251107
  Transmission Date: 20260118
  Serious: Yes (Other)
  Sender: ROCHE
  Company Number: None

PATIENT
  Sex: Female

DRUGS (9)
  1. CAPECITABINE [Suspect]
     Active Substance: CAPECITABINE
     Indication: Chemotherapy
     Dosage: BID (1ST CYCLE, 1-0-1 ON  THE 1ST CYCLE, THEN  EVERY 28  DAYS)
     Route: 065
     Dates: start: 2020, end: 2020
  2. ATEZOLIZUMAB [Suspect]
     Active Substance: ATEZOLIZUMAB
     Indication: Chemotherapy
     Dosage: 840 MG, 28D
     Route: 065
     Dates: end: 202109
  3. ALPELISIB [Suspect]
     Active Substance: ALPELISIB
     Indication: Hormone receptor positive HER2 negative breast cancer
     Route: 065
     Dates: start: 202009, end: 2020
  4. ALPELISIB [Suspect]
     Active Substance: ALPELISIB
     Indication: PIK3CA-activated mutation
     Dosage: BID
     Route: 065
     Dates: start: 2020, end: 202012
  5. EPIRUBICIN [Suspect]
     Active Substance: EPIRUBICIN
     Indication: Chemotherapy
     Dosage: 30 UNK (MG/M2 BODY SURFACE ARE)
     Route: 065
     Dates: end: 202105
  6. PACLITAXEL [Suspect]
     Active Substance: PACLITAXEL
     Indication: Chemotherapy
     Dosage: 100 UNK (MG/M2  BODY SURFACE ARE)
     Route: 065
     Dates: end: 202109
  7. FULVESTRANT [Suspect]
     Active Substance: FULVESTRANT
     Indication: Product used for unknown indication
     Route: 065
     Dates: end: 202012
  8. DENOSUMAB [Concomitant]
     Active Substance: DENOSUMAB
     Indication: Chemotherapy
     Dosage: 120 MG
     Route: 058
     Dates: start: 202101, end: 2021
  9. VINORELBINE [Concomitant]
     Active Substance: VINORELBINE TARTRATE
     Indication: Chemotherapy
     Dosage: 25 MG ( MG/M2 BODY SURFACE)
     Route: 065
     Dates: start: 202101, end: 202102

REACTIONS (9)
  - Type 2 diabetes mellitus [Unknown]
  - Malignant neoplasm progression [Unknown]
  - Breast cancer metastatic [Unknown]
  - Pneumonitis [Unknown]
  - Metastatic neoplasm [Unknown]
  - Disease progression [Unknown]
  - General physical health deterioration [Unknown]
  - Hypoglycaemia [Unknown]
  - Activated PI3 kinase delta syndrome [Unknown]

NARRATIVE: CASE EVENT DATE: 20200101
